FAERS Safety Report 16951786 (Version 3)
Quarter: 2020Q1

REPORT INFORMATION
  Report Type: Report from Study
  Country: US (occurrence: US)
  Receive Date: 20191023
  Receipt Date: 20200219
  Transmission Date: 20200409
  Serious: No
  Sender: FDA-Public Use
  Company Number: US-SHIRE-US201935440

PATIENT
  Age: 73 Year
  Sex: Female

DRUGS (3)
  1. GATTEX [Suspect]
     Active Substance: TEDUGLUTIDE\WATER
     Dosage: 2.38 MILLIGRAM, 1X/DAY:QD
     Route: 058
     Dates: start: 20190912
  2. GATTEX [Suspect]
     Active Substance: TEDUGLUTIDE\WATER
     Dosage: 2.38 MILLIGRAM, 1X/DAY:QD
     Route: 058
     Dates: start: 20191017
  3. GATTEX [Suspect]
     Active Substance: TEDUGLUTIDE\WATER
     Indication: SHORT-BOWEL SYNDROME
     Dosage: 2.38 MILLIGRAM, 1X/DAY:QD
     Route: 058
     Dates: start: 20190612

REACTIONS (6)
  - Diarrhoea [Unknown]
  - Product packaging quantity issue [Unknown]
  - Abdominal pain upper [Unknown]
  - Inappropriate schedule of product administration [Unknown]
  - Abdominal discomfort [Unknown]
  - Constipation [Unknown]

NARRATIVE: CASE EVENT DATE: 20191013
